FAERS Safety Report 20365054 (Version 1)
Quarter: 2022Q1

REPORT INFORMATION
  Report Type: Spontaneous
  Country: JP (occurrence: JP)
  Receive Date: 20220122
  Receipt Date: 20220122
  Transmission Date: 20220423
  Serious: Yes (Other)
  Sender: FDA-Public Use
  Company Number: JP-UNITED THERAPEUTICS-UNT-2022-001349

PATIENT
  Age: 5 Year
  Sex: Female

DRUGS (4)
  1. UNITUXIN [Suspect]
     Active Substance: DINUTUXIMAB
     Indication: Neuroblastoma
     Dosage: 17.5 MG/M2, CYCLICAL (CYCLE 1)
     Route: 041
     Dates: start: 20211115, end: 20211115
  2. UNITUXIN [Suspect]
     Active Substance: DINUTUXIMAB
     Dosage: 17.5 MG/M2, CYCLICAL (CYCLE 1)
     Route: 041
     Dates: start: 20211117, end: 20211119
  3. UNITUXIN [Suspect]
     Active Substance: DINUTUXIMAB
     Dosage: 17.5 MG/M2, CYCLICAL (CYCLE 3)
     Route: 041
     Dates: start: 20220111
  4. TECELEUKIN [Suspect]
     Active Substance: TECELEUKIN
     Indication: Neuroblastoma
     Dosage: UNK
     Route: 041
     Dates: start: 20211207

REACTIONS (13)
  - Capillary leak syndrome [Recovered/Resolved]
  - Venoocclusive liver disease [Recovered/Resolved]
  - Blood albumin decreased [Not Recovered/Not Resolved]
  - Infusion related reaction [Recovered/Resolved]
  - Abdominal pain [Recovering/Resolving]
  - Pyrexia [Recovered/Resolved]
  - Blood pressure decreased [Recovered/Resolved]
  - Tachycardia [Recovered/Resolved]
  - Oedema [Not Recovered/Not Resolved]
  - Pain in extremity [Recovered/Resolved]
  - Antithrombin III decreased [Not Recovered/Not Resolved]
  - Fibrin D dimer decreased [Not Recovered/Not Resolved]
  - C-reactive protein increased [Recovered/Resolved]

NARRATIVE: CASE EVENT DATE: 20211115
